FAERS Safety Report 13761442 (Version 2)
Quarter: 2017Q3

REPORT INFORMATION
  Report Type: Report from Study
  Country: None (occurrence: IT)
  Receive Date: 20170717
  Receipt Date: 20170725
  Transmission Date: 20171127
  Serious: Yes (Death, Hospitalization)
  Sender: FDA-Public Use
  Company Number: IT-ABBVIE-17K-083-2040917-00

PATIENT
  Age: 75 Year
  Sex: Male

DRUGS (1)
  1. DUODOPA [Suspect]
     Active Substance: CARBIDOPA\LEVODOPA
     Indication: PARKINSON^S DISEASE
     Dosage: MD 5,8+3??CR 5,3??ED 2,5
     Route: 050
     Dates: start: 20100807

REACTIONS (2)
  - Respiratory arrest [Fatal]
  - Hospitalisation [Unknown]

NARRATIVE: CASE EVENT DATE: 2017
